FAERS Safety Report 14231612 (Version 1)
Quarter: 2017Q4

REPORT INFORMATION
  Report Type: Spontaneous
  Country: RS (occurrence: RS)
  Receive Date: 20171128
  Receipt Date: 20171128
  Transmission Date: 20180321
  Serious: Yes (Hospitalization)
  Sender: FDA-Public Use
  Company Number: RS-SEBELA IRELAND LIMITED-2017SEB00477

PATIENT
  Age: 36 Year
  Sex: Female

DRUGS (2)
  1. PREDNISONE. [Concomitant]
     Active Substance: PREDNISONE
     Route: 065
  2. AZATHIOPRINE. [Suspect]
     Active Substance: AZATHIOPRINE
     Indication: COLITIS ULCERATIVE
     Dosage: UNK
     Route: 065

REACTIONS (4)
  - Acute respiratory failure [Recovered/Resolved]
  - Pneumonia bacterial [Recovered/Resolved]
  - Pulmonary embolism [Recovered/Resolved]
  - Bronchopulmonary aspergillosis [Recovered/Resolved]
